FAERS Safety Report 19230507 (Version 3)
Quarter: 2021Q3

REPORT INFORMATION
  Report Type: Report from Study
  Country: CO (occurrence: CO)
  Receive Date: 20210507
  Receipt Date: 20210805
  Transmission Date: 20211014
  Serious: Yes (Other)
  Sender: FDA-Public Use
  Company Number: NVSC2021CO101745

PATIENT
  Sex: Male
  Weight: 32.3 kg

DRUGS (1)
  1. OMNITROPE [Suspect]
     Active Substance: SOMATROPIN
     Indication: GROWTH HORMONE DEFICIENCY
     Dosage: 1.0 MG, QD
     Route: 058
     Dates: start: 20200923, end: 20210311

REACTIONS (4)
  - Diabetes mellitus [Unknown]
  - Incorrect dose administered [Unknown]
  - Glucose tolerance impaired [Unknown]
  - Overweight [Unknown]
